FAERS Safety Report 7170406-9 (Version None)
Quarter: 2010Q4

REPORT INFORMATION
  Report Type: 
  Country: None (occurrence: None)
  Receive Date: 20101214
  Receipt Date: 20101214
  Transmission Date: 20110411
  Serious: No
  Sender: FDA-Public Use
  Company Number: None

PATIENT
  Sex: Female
  Weight: 95.5 kg

DRUGS (4)
  1. RISPERIDONE [Suspect]
     Indication: AFFECTIVE DISORDER
     Dosage: 2 MGM DAILY PO
     Route: 048
     Dates: start: 20101122, end: 20101201
  2. RISPERIDONE [Suspect]
     Indication: BIPOLAR DISORDER
     Dosage: 2 MGM DAILY PO
     Route: 048
     Dates: start: 20101122, end: 20101201
  3. CELEXA [Concomitant]
  4. SEROQUEL XR [Concomitant]

REACTIONS (6)
  - CHEST DISCOMFORT [None]
  - DYSPNOEA [None]
  - FACE OEDEMA [None]
  - HYPERSENSITIVITY [None]
  - LARYNGOSPASM [None]
  - RASH GENERALISED [None]
